FAERS Safety Report 17561168 (Version 2)
Quarter: 2023Q4

REPORT INFORMATION
  Report Type: Spontaneous
  Country: PT (occurrence: PT)
  Receive Date: 20200319
  Receipt Date: 20231010
  Transmission Date: 20240110
  Serious: Yes (Other)
  Sender: FDA-Public Use
  Company Number: PT-LABVITORIA-2019-00268

PATIENT
  Sex: Female

DRUGS (13)
  1. ADALIMUMAB [Suspect]
     Active Substance: ADALIMUMAB
     Indication: Juvenile idiopathic arthritis
     Dosage: 24 MILLIGRAM/SQ. METER, Q2W
     Route: 058
     Dates: start: 2014
  2. ADALIMUMAB [Suspect]
     Active Substance: ADALIMUMAB
     Indication: Psoriasis
     Dosage: 24 MILLIGRAM/SQ. METER, Q2W
     Route: 058
  3. IBUPROFEN [Suspect]
     Active Substance: IBUPROFEN
     Indication: Juvenile idiopathic arthritis
     Dosage: 30 MILLIGRAM/KILOGRAM, QD
     Route: 048
     Dates: start: 2010
  4. METHOTREXATE [Suspect]
     Active Substance: METHOTREXATE
     Indication: Juvenile idiopathic arthritis
     Dosage: UNK
     Route: 058
  5. TIMOLOL [Suspect]
     Active Substance: TIMOLOL
     Indication: Intraocular pressure increased
     Dosage: 5 MG/ML (TWICE DAILY EACH, IN BOTH EYES)
     Route: 061
  6. DEFLAZACORT [Suspect]
     Active Substance: DEFLAZACORT
     Indication: Juvenile idiopathic arthritis
     Dosage: 0.5 MILLIGRAM/KILOGRAM, QD
     Route: 048
     Dates: start: 2011
  7. BRIMONIDINE [Suspect]
     Active Substance: BRIMONIDINE TARTRATE
     Indication: Intraocular pressure test
     Dosage: 2 MILLIGRAM PER MILLILITRE
     Route: 061
  8. LATANOPROST [Suspect]
     Active Substance: LATANOPROST
     Indication: Glaucoma
     Dosage: 0.05 MILLIGRAM PER MILLILITRE
     Route: 061
     Dates: start: 2014
  9. BRINZOLAMIDE [Suspect]
     Active Substance: BRINZOLAMIDE
     Indication: Intraocular pressure test
     Dosage: 10 MILLIGRAM PER MILLILITRE
     Route: 061
  10. METHOTREXATE [Suspect]
     Active Substance: METHOTREXATE
     Indication: Juvenile idiopathic arthritis
     Dosage: 15 MILLIGRAM/SQ. METER, QW
     Route: 048
     Dates: start: 2011
  11. DEXAMETHASONE SODIUM PHOSPHATE [Suspect]
     Active Substance: DEXAMETHASONE SODIUM PHOSPHATE
     Indication: Product used for unknown indication
     Dosage: TWICE DAILY EACH, IN BOTH EYES
     Route: 061
  12. ACETAZOLAMIDE [Suspect]
     Active Substance: ACETAZOLAMIDE
     Indication: Glaucoma
     Dosage: 250 MILLIGRAM, QD
     Route: 048
     Dates: start: 2014
  13. TOCILIZUMAB [Concomitant]
     Active Substance: TOCILIZUMAB
     Indication: Product used for unknown indication
     Dosage: 12 MILLIGRAM/KILOGRAM, Q2W (EVERY TWO WEEKS)
     Route: 042

REACTIONS (4)
  - Cushing^s syndrome [Unknown]
  - Muscle atrophy [Unknown]
  - Short stature [Unknown]
  - Drug ineffective [Unknown]
